FAERS Safety Report 11426943 (Version 1)
Quarter: 2015Q3

REPORT INFORMATION
  Report Type: Spontaneous
  Country: US (occurrence: US)
  Receive Date: 20150821
  Receipt Date: 20150821
  Transmission Date: 20151125
  Serious: No
  Sender: FDA-Public Use
  Company Number: US-ELI_LILLY_AND_COMPANY-US201309005453

PATIENT
  Sex: Male

DRUGS (5)
  1. HUMULIN N [Concomitant]
     Active Substance: INSULIN HUMAN
     Dosage: 55 DF, EACH EVENING
  2. NOVOLOG [Suspect]
     Active Substance: INSULIN ASPART
     Dosage: 5 DF, EACH MORNING
  3. NOVOLOG [Suspect]
     Active Substance: INSULIN ASPART
     Dosage: 15 DF, EACH EVENING
  4. HUMULIN N [Concomitant]
     Active Substance: INSULIN HUMAN
     Dosage: 45 DF, EACH MORNING
  5. INSULIN HUMAN [Suspect]
     Active Substance: INSULIN HUMAN

REACTIONS (1)
  - Drug dispensing error [Unknown]
